FAERS Safety Report 10966112 (Version 1)
Quarter: 2015Q1

REPORT INFORMATION
  Report Type: Spontaneous
  Country: DE (occurrence: DE)
  Receive Date: 20150330
  Receipt Date: 20150330
  Transmission Date: 20150721
  Serious: Yes (Death)
  Sender: FDA-Public Use
  Company Number: DE-SA-2015SA037968

PATIENT
  Age: 21 Year
  Sex: Male
  Weight: 65 kg

DRUGS (2)
  1. TRENTAL [Suspect]
     Active Substance: PENTOXIFYLLINE
     Indication: TINNITUS
     Route: 048
     Dates: start: 20120104, end: 20120113
  2. PREDNISONE. [Concomitant]
     Active Substance: PREDNISONE
     Route: 048

REACTIONS (8)
  - Hyperhidrosis [Fatal]
  - Seizure [Fatal]
  - Restlessness [Fatal]
  - Paraesthesia [Fatal]
  - Dizziness [Fatal]
  - Nausea [Fatal]
  - Chest discomfort [Fatal]
  - Headache [Fatal]

NARRATIVE: CASE EVENT DATE: 201201
